FAERS Safety Report 5719105-8 (Version None)
Quarter: 2008Q2

REPORT INFORMATION
  Report Type: 
  Country: None (occurrence: None)
  Receive Date: 20080426
  Receipt Date: 20080410
  Transmission Date: 20081010
  Serious: Yes (Other)
  Sender: FDA-Public Use
  Company Number: PHHY2008AR06392

PATIENT
  Age: 60 Year
  Sex: Female

DRUGS (3)
  1. CALCITONINA SANDOZ [Suspect]
     Indication: BONE PAIN
     Dosage: 2 AND A HALF AMPOULES PER DAY
     Route: 030
     Dates: start: 20070401
  2. KETOROLAC TROMETHAMINE [Concomitant]
  3. MORFINE [Concomitant]

REACTIONS (3)
  - ABDOMINAL PAIN [None]
  - BONE PAIN [None]
  - DIARRHOEA HAEMORRHAGIC [None]
